FAERS Safety Report 10239402 (Version 2)
Quarter: 2014Q4

REPORT INFORMATION
  Report Type: Spontaneous
  Country: US (occurrence: None)
  Receive Date: 20140612
  Receipt Date: 20141104
  Transmission Date: 20150528
  Serious: Yes (Hospitalization)
  Sender: FDA-Public Use
  Company Number: UNT-2014-001503

PATIENT
  Age: 57 Year
  Sex: Female
  Weight: 44.5 kg

DRUGS (2)
  1. TRACLEER [Concomitant]
     Active Substance: BOSENTAN\BOSENTAN MONOHYDRATE
  2. REMODULIN [Suspect]
     Active Substance: TREPROSTINIL
     Indication: COR PULMONALE CHRONIC
     Route: 041
     Dates: start: 20140507

REACTIONS (5)
  - Respiratory failure [None]
  - Headache [None]
  - Back pain [None]
  - Dyspnoea [None]
  - Pericardial effusion [None]

NARRATIVE: CASE EVENT DATE: 20140525
